FAERS Safety Report 9798430 (Version 1)
Quarter: 2014Q1

REPORT INFORMATION
  Report Type: Spontaneous
  Country: FR (occurrence: FR)
  Receive Date: 20140106
  Receipt Date: 20140106
  Transmission Date: 20141002
  Serious: Yes (Hospitalization)
  Sender: FDA-Public Use
  Company Number: FR-PFIZER INC-2013373507

PATIENT
  Age: 58 Year
  Sex: Female

DRUGS (10)
  1. TAHOR [Suspect]
     Indication: INFARCTION
     Dosage: 40 MG, 1X/DAY
     Route: 048
  2. INIPOMP [Suspect]
     Dosage: 20 MG, 1X/DAY
     Route: 048
  3. LASILIX FAIBLE [Suspect]
     Indication: HYPERTENSION
     Dosage: 20 MG, 1X/DAY
     Route: 048
  4. KARDEGIC [Concomitant]
  5. TRIATEC [Concomitant]
  6. DOLIPRANE [Concomitant]
  7. TOPALGIC [Concomitant]
  8. PREVISCAN [Concomitant]
  9. VENTOLINE [Concomitant]
  10. ADANCOR [Concomitant]

REACTIONS (2)
  - Abdominal pain upper [Recovered/Resolved]
  - Pancreatitis acute [Unknown]
